FAERS Safety Report 11097087 (Version 2)
Quarter: 2015Q2

REPORT INFORMATION
  Report Type: Report from Study
  Country: US (occurrence: US)
  Receive Date: 20150507
  Receipt Date: 20150629
  Transmission Date: 20150821
  Serious: Yes (Death, Hospitalization)
  Sender: FDA-Public Use
  Company Number: US-SA-2015SA060240

PATIENT
  Age: 71 Year
  Sex: Female

DRUGS (9)
  1. BENADRYL [Concomitant]
     Active Substance: DIPHENHYDRAMINE HYDROCHLORIDE
  2. LUMIZYME [Suspect]
     Active Substance: ALGLUCOSIDASE ALFA
     Indication: GLYCOGEN STORAGE DISEASE TYPE II
     Route: 042
     Dates: start: 20100618, end: 20150416
  3. BACLOFEN. [Concomitant]
     Active Substance: BACLOFEN
  4. OMEPRAZOLE. [Concomitant]
     Active Substance: OMEPRAZOLE
  5. HYDROCORTISONE. [Concomitant]
     Active Substance: HYDROCORTISONE
  6. VITAMIN B [Concomitant]
     Active Substance: VITAMIN B
     Dates: end: 2015
  7. CALCIUM CITRATE [Concomitant]
     Active Substance: CALCIUM CITRATE
  8. HERCEPTIN [Concomitant]
     Active Substance: TRASTUZUMAB
  9. FASLODEX [Concomitant]
     Active Substance: FULVESTRANT
     Dosage: DOSE:50 MILLIGRAM(S)/MILLILITRE

REACTIONS (3)
  - Respiratory disorder [Fatal]
  - Hospitalisation [Unknown]
  - Oxygen saturation abnormal [Fatal]
